FAERS Safety Report 5340816-0 (Version None)
Quarter: 2007Q2

REPORT INFORMATION
  Report Type: 
  Country: None (occurrence: None)
  Receive Date: 20070405
  Receipt Date: 20070201
  Transmission Date: 20071010
  Serious: No
  Sender: FDA-Public Use
  Company Number: US200702000344

PATIENT
  Age: 48 Year
  Sex: Male

DRUGS (10)
  1. CYMBALTA [Suspect]
     Indication: PAIN
     Dosage: 60 MG
     Dates: start: 20070124
  2. BACLOFEN [Concomitant]
  3. DITROPAN [Concomitant]
  4. VITAMINS NOS (VITAMINS NOS) [Concomitant]
  5. NEXIUM [Concomitant]
  6. ZELNORM [Concomitant]
  7. MACROBID [Concomitant]
  8. DOXYCYCLINE [Concomitant]
  9. MARINOL [Concomitant]
  10. RAMELTEON (RAMELTEON) [Concomitant]

REACTIONS (2)
  - ABDOMINAL DISTENSION [None]
  - URINARY RETENTION [None]
